FAERS Safety Report 14947594 (Version 1)
Quarter: 2018Q2

REPORT INFORMATION
  Report Type: Spontaneous
  Country: US (occurrence: US)
  Receive Date: 20180529
  Receipt Date: 20180529
  Transmission Date: 20180711
  Serious: No
  Sender: FDA-Public Use
  Company Number: US-UPSHER-SMITH LABORATORIES, LLC-2018USL00066

PATIENT
  Age: 67 Year
  Sex: Female
  Weight: 77.55 kg

DRUGS (14)
  1. TORSEMIDE. [Concomitant]
     Active Substance: TORSEMIDE
     Dosage: 10 MG, 1X/DAY
  2. CHLORDIAZEPOXIDE. [Concomitant]
     Active Substance: CHLORDIAZEPOXIDE
     Dosage: 25 MG, 1X/DAY
  3. HYDROCODONE [Concomitant]
     Active Substance: HYDROCODONE
     Dosage: 1 DOSAGE UNITS, 4X/DAY
  4. SIMVASTATIN. [Concomitant]
     Active Substance: SIMVASTATIN
     Dosage: 20 MG, UNK
  5. ALLOPURINIOL [Concomitant]
     Dosage: 300 MG, 1X/DAY
  6. WARFARIN [Concomitant]
     Active Substance: WARFARIN
     Dosage: 5 MG, 3X/WEEK ON MONDAY/WEDNESDAY/FRIDAY
  7. VITAMIN B6 [Concomitant]
     Active Substance: PYRIDOXINE HYDROCHLORIDE
     Dosage: 100 MG, 1X/DAY
  8. KLOR-CON [Suspect]
     Active Substance: POTASSIUM CHLORIDE
     Indication: BLOOD POTASSIUM DECREASED
     Dosage: 20 MEQ, 3X/DAY
     Route: 048
     Dates: end: 201802
  9. RANITIDINE. [Concomitant]
     Active Substance: RANITIDINE
     Dosage: 300 MG, 1X/DAY
  10. MECLIZINE [Concomitant]
     Active Substance: MECLIZINE HYDROCHLORIDE
  11. VENTOLIN [Concomitant]
     Active Substance: ALBUTEROL SULFATE
  12. CALCIUM [Concomitant]
     Active Substance: CALCIUM
     Dosage: 600 MG, 1X/DAY
  13. WARFARIN [Concomitant]
     Active Substance: WARFARIN
     Dosage: 2.5 MG, 1X/DAY ON TUESDAY/THURSDAY/SATURDAY/SUNDAY
  14. ENALAPRIL [Concomitant]
     Active Substance: ENALAPRIL
     Dosage: 1 DOSAGE UNITS, 1X/DAY

REACTIONS (6)
  - Sciatica [Not Recovered/Not Resolved]
  - Bowel movement irregularity [Recovered/Resolved]
  - Medication residue present [Recovered/Resolved]
  - Fatigue [Recovering/Resolving]
  - Feeling abnormal [Recovering/Resolving]
  - Drug effect incomplete [Unknown]

NARRATIVE: CASE EVENT DATE: 201611
